FAERS Safety Report 9693100 (Version 1)
Quarter: 2013Q4

REPORT INFORMATION
  Report Type: Spontaneous
  Country: PL (occurrence: PL)
  Receive Date: 20131118
  Receipt Date: 20131118
  Transmission Date: 20140711
  Serious: Yes (Other)
  Sender: FDA-Public Use
  Company Number: PL-ROCHE-1304364

PATIENT
  Sex: 0

DRUGS (2)
  1. VEMURAFENIB [Suspect]
     Indication: PRODUCT USED FOR UNKNOWN INDICATION
     Dosage: 2 X 960 MG
     Route: 065
     Dates: start: 201306
  2. VEMURAFENIB [Suspect]
     Dosage: 2 X 720 MG
     Route: 065

REACTIONS (3)
  - Skin toxicity [Unknown]
  - Myalgia [Unknown]
  - Arthralgia [Unknown]
